FAERS Safety Report 18292453 (Version 1)
Quarter: 2020Q3

REPORT INFORMATION
  Report Type: Spontaneous
  Country: US (occurrence: US)
  Receive Date: 20200922
  Receipt Date: 20200922
  Transmission Date: 20201103
  Serious: No
  Sender: FDA-Public Use
  Company Number: US-CURIUM-199700034

PATIENT
  Sex: Male

DRUGS (2)
  1. THALLOUS CHLORIDE TL 201 [Suspect]
     Active Substance: THALLOUS CHLORIDE TL-201
     Indication: CARDIAC STRESS TEST
     Route: 042
     Dates: start: 19970812, end: 19970812
  2. MYOVIEW [Concomitant]
     Active Substance: TECHNETIUM TC-99M TETROFOSMIN
     Indication: CARDIAC IMAGING PROCEDURE
     Route: 042
     Dates: start: 19970812, end: 19970812

REACTIONS (1)
  - Erythema [Recovered/Resolved]

NARRATIVE: CASE EVENT DATE: 19970812
